FAERS Safety Report 5640793-9 (Version None)
Quarter: 2008Q1

REPORT INFORMATION
  Report Type: 
  Country: None (occurrence: None)
  Receive Date: 20080131
  Receipt Date: 20071106
  Transmission Date: 20080703
  Serious: No
  Sender: FDA-Public Use
  Company Number: 163-21880-07110363

PATIENT
  Age: 75 Year
  Sex: Female

DRUGS (10)
  1. REVLIMID [Suspect]
     Indication: MULTIPLE MYELOMA
     Dosage: 5 MG, EVERY OTHER DAY, ORAL ; 5 MG, DAILY, ORAL ; 10 MG, DAILY, ORAL
     Route: 048
     Dates: start: 20070219, end: 20070401
  2. REVLIMID [Suspect]
     Indication: MULTIPLE MYELOMA
     Dosage: 5 MG, EVERY OTHER DAY, ORAL ; 5 MG, DAILY, ORAL ; 10 MG, DAILY, ORAL
     Route: 048
     Dates: start: 20070401, end: 20071001
  3. REVLIMID [Suspect]
     Indication: MULTIPLE MYELOMA
     Dosage: 5 MG, EVERY OTHER DAY, ORAL ; 5 MG, DAILY, ORAL ; 10 MG, DAILY, ORAL
     Route: 048
     Dates: start: 20071005, end: 20071015
  4. LOVASTATIN [Concomitant]
  5. POTASSIUM (POTASSIUM) [Concomitant]
  6. LISINOPRIL [Concomitant]
  7. TEMAZEPAM [Concomitant]
  8. DEXAMETHASONE TAB [Concomitant]
  9. HYDROCHLOROTHIAZIDE [Concomitant]
  10. ASPIRIN [Concomitant]

REACTIONS (3)
  - BLOOD CREATININE INCREASED [None]
  - OEDEMA PERIPHERAL [None]
  - THROMBOCYTOPENIA [None]
